FAERS Safety Report 10448084 (Version 2)
Quarter: 2014Q4

REPORT INFORMATION
  Report Type: Spontaneous
  Country: US (occurrence: US)
  Receive Date: 20140911
  Receipt Date: 20141027
  Transmission Date: 20150528
  Serious: Yes (Hospitalization, Other)
  Sender: FDA-Public Use
  Company Number: US-PFIZER INC-2014249899

PATIENT
  Age: 70 Year
  Sex: Male

DRUGS (5)
  1. TESTOSTERONE CIPIONATE [Suspect]
     Active Substance: TESTOSTERONE
     Indication: ERECTILE DYSFUNCTION
     Dosage: WEEKLY
     Route: 030
     Dates: end: 20140711
  2. SILJOY [Suspect]
     Active Substance: SILDENAFIL CITRATE
     Indication: ERECTILE DYSFUNCTION
     Dosage: 100 MG, AS NEEDED (100 MG QD PRE-RELATIVES PRN)
     Route: 048
     Dates: end: 20140711
  3. AMLODIPINE [Concomitant]
     Active Substance: AMLODIPINE BESYLATE
     Indication: HYPERTENSION
     Dosage: 5 MG, 1X/DAY
     Dates: start: 20140103
  4. LISINOPRIL. [Concomitant]
     Active Substance: LISINOPRIL
     Dosage: 5 MG, 1X/DAY (QD)
  5. VIAGRA [Suspect]
     Active Substance: SILDENAFIL CITRATE
     Indication: ERECTILE DYSFUNCTION
     Dosage: 100 MG, AS NEEDED (100 MG QD PRE-RELATIVES PRN) EPISODICALLY
     Route: 048
     Dates: end: 20140711

REACTIONS (9)
  - Disorientation [Unknown]
  - Oedema due to cardiac disease [Unknown]
  - Dizziness [Unknown]
  - Asthenia [Unknown]
  - Cerebrovascular accident [Recovered/Resolved]
  - Disorientation [None]
  - Intervertebral disc protrusion [Unknown]
  - Muscular weakness [Unknown]
  - Cardiovascular disorder [None]

NARRATIVE: CASE EVENT DATE: 20140711
